FAERS Safety Report 12514443 (Version 1)
Quarter: 2016Q2

REPORT INFORMATION
  Report Type: Spontaneous
  Country: US (occurrence: None)
  Receive Date: 20160629
  Receipt Date: 20160629
  Transmission Date: 20160815
  Serious: No
  Sender: FDA-Public Use
  Company Number: None

PATIENT
  Age: 16 Year
  Sex: Male

DRUGS (7)
  1. CLOZAPINE. [Suspect]
     Active Substance: CLOZAPINE
     Route: 048
     Dates: start: 20151123, end: 20151124
  2. HALOPERIDOL. [Suspect]
     Active Substance: HALOPERIDOL
     Route: 048
     Dates: start: 20151120, end: 20151123
  3. DOCUSATE 100MG [Concomitant]
  4. ALBUTEROL. [Concomitant]
     Active Substance: ALBUTEROL
  5. LORAZEPAM 1MG [Concomitant]
  6. CLONIDINE 0.1MG [Concomitant]
  7. DIPHENHYDRAMINE 150MG [Concomitant]

REACTIONS (8)
  - Salivary hypersecretion [None]
  - Tachycardia [None]
  - Extrapyramidal disorder [None]
  - Drug interaction [None]
  - Dystonia [None]
  - Tremor [None]
  - Balance disorder [None]
  - Cogwheel rigidity [None]

NARRATIVE: CASE EVENT DATE: 20151124
